FAERS Safety Report 5338075-8 (Version None)
Quarter: 2007Q2

REPORT INFORMATION
  Report Type: 
  Country: None (occurrence: None)
  Receive Date: 20070530
  Receipt Date: 20070518
  Transmission Date: 20071010
  Serious: Yes (Other)
  Sender: FDA-Public Use
  Company Number: PHMT2007CA01259

PATIENT
  Age: 47 Year
  Sex: Female

DRUGS (2)
  1. FAMVIR [Suspect]
     Indication: HERPES ZOSTER
     Dosage: 500 MG, TID FOR 7 DAYS
     Dates: start: 20070516
  2. ATIVAN [Concomitant]
     Dosage: UNK, PRN

REACTIONS (1)
  - PARAESTHESIA [None]
